FAERS Safety Report 16864114 (Version 2)
Quarter: 2019Q4

REPORT INFORMATION
  Report Type: Spontaneous
  Country: US (occurrence: US)
  Receive Date: 20190927
  Receipt Date: 20191015
  Transmission Date: 20200122
  Serious: Yes (Death)
  Sender: FDA-Public Use
  Company Number: PHHY2019US225182

PATIENT
  Age: 21 Year
  Sex: Male

DRUGS (1)
  1. PREDNISONE. [Suspect]
     Active Substance: PREDNISONE
     Indication: RETINAL PIGMENT EPITHELIOPATHY
     Dosage: 80 MG, QD
     Route: 048

REACTIONS (8)
  - Central nervous system vasculitis [Fatal]
  - Cerebral infarction [Fatal]
  - Cerebrovascular accident [Fatal]
  - Brain death [Fatal]
  - Product use in unapproved indication [Unknown]
  - Brain herniation [Fatal]
  - Brain oedema [Fatal]
  - Mental status changes [Fatal]
